FAERS Safety Report 18263129 (Version 2)
Quarter: 2020Q4

REPORT INFORMATION
  Report Type: Spontaneous
  Country: NL (occurrence: GB)
  Receive Date: 20200914
  Receipt Date: 20201202
  Transmission Date: 20210113
  Serious: Yes (Death, Life-Threatening, Other)
  Sender: FDA-Public Use
  Company Number: GB-FRESENIUS KABI-FK202009230

PATIENT
  Age: 17 Year
  Sex: Female

DRUGS (4)
  1. SUGAMMADEX SODIUM [Suspect]
     Active Substance: SUGAMMADEX SODIUM
     Indication: NEUROMUSCULAR BLOCKADE REVERSAL
     Dosage: 200MG, UNK
     Route: 040
     Dates: start: 201909, end: 201909
  2. ROCURONIUM [Suspect]
     Active Substance: ROCURONIUM BROMIDE
     Indication: PRODUCT USED FOR UNKNOWN INDICATION
     Dosage: UNK
     Route: 065
     Dates: start: 201909, end: 201909
  3. CARBOPROST [Suspect]
     Active Substance: CARBOPROST
     Indication: UTERINE HAEMORRHAGE
     Dosage: 250 MICROGRAM, 6 TIMES
     Route: 030
     Dates: start: 201909, end: 201909
  4. CARBOPROST [Suspect]
     Active Substance: CARBOPROST
     Indication: UTERINE CONTRACTIONS ABNORMAL
     Dosage: 500 MICROGRAM, ONCE
     Route: 015
     Dates: start: 201909, end: 201909

REACTIONS (10)
  - Lung perforation [Unknown]
  - Death [Fatal]
  - Brain injury [Unknown]
  - Hypoventilation [Unknown]
  - Anaphylactic reaction [Unknown]
  - Apallic syndrome [Unknown]
  - Cardiac arrest [Unknown]
  - Uterine haemorrhage [Unknown]
  - Bronchospasm [Unknown]
  - Maternal exposure during delivery [Unknown]

NARRATIVE: CASE EVENT DATE: 201909
